FAERS Safety Report 7059523-1 (Version None)
Quarter: 2010Q4

REPORT INFORMATION
  Report Type: 
  Country: None (occurrence: None)
  Receive Date: 20101025
  Receipt Date: 20101011
  Transmission Date: 20110411
  Serious: Yes (Other)
  Sender: FDA-Public Use
  Company Number: BR-RANBAXY-2010RR-36756

PATIENT
  Age: 33 Year
  Sex: Female

DRUGS (5)
  1. HALOPERIDOL [Suspect]
     Indication: AGGRESSION
     Dosage: 5 MG, BID
  2. HALOPERIDOL [Suspect]
     Indication: ABNORMAL BEHAVIOUR
  3. RISPERIDONE [Suspect]
     Dosage: 1 MG, BID
  4. DIAZEPAM [Concomitant]
     Dosage: 10 MG, UNK
  5. DIAZEPAM [Concomitant]
     Dosage: 10 MG, TID

REACTIONS (1)
  - PLEUROTHOTONUS [None]
